FAERS Safety Report 4611954-2 (Version None)
Quarter: 2005Q2

REPORT INFORMATION
  Report Type: 
  Country: None (occurrence: None)
  Receive Date: 20050308
  Receipt Date: 20050118
  Transmission Date: 20051028
  Serious: Yes (Other)
  Sender: FDA-Public Use
  Company Number: 2004UW25746

PATIENT
  Sex: Female

DRUGS (1)
  1. CRESTOR [Suspect]
     Dates: start: 20040201

REACTIONS (8)
  - DIARRHOEA [None]
  - FATIGUE [None]
  - FEELING ABNORMAL [None]
  - HYPOAESTHESIA [None]
  - MUSCLE SPASMS [None]
  - NAUSEA [None]
  - RENAL DISORDER [None]
  - VOMITING [None]
